FAERS Safety Report 8819760 (Version 1)
Quarter: 2012Q4

REPORT INFORMATION
  Report Type: 
  Country: US (occurrence: US)
  Receive Date: 20121001
  Receipt Date: 20121001
  Transmission Date: 20130627
  Serious: Yes (Death, Other)
  Sender: FDA-Public Use
  Company Number: US-ROCHE-1129575

PATIENT
  Sex: Female

DRUGS (10)
  1. HERCEPTIN [Suspect]
     Indication: BREAST CANCER FEMALE
     Route: 042
     Dates: start: 19991111
  2. HERCEPTIN [Suspect]
     Indication: BRAIN NEOPLASM MALIGNANT
     Route: 042
     Dates: start: 19991118
  3. ANZEMET [Concomitant]
     Route: 042
     Dates: start: 19991111
  4. ANZEMET [Concomitant]
     Route: 042
     Dates: start: 19991118
  5. BENADRYL [Concomitant]
     Route: 042
     Dates: start: 19991111
  6. BENADRYL [Concomitant]
     Route: 042
     Dates: start: 19991118
  7. DECADRON [Concomitant]
     Route: 042
     Dates: start: 19991111
  8. DECADRON [Concomitant]
     Route: 042
     Dates: start: 19991118
  9. TYLENOL [Concomitant]
     Route: 048
  10. TAXOTERE [Concomitant]

REACTIONS (6)
  - Death [Fatal]
  - Hepatomegaly [Unknown]
  - Musculoskeletal chest pain [Unknown]
  - Cough [Recovering/Resolving]
  - Abdominal pain upper [Unknown]
  - Chills [Recovering/Resolving]
